FAERS Safety Report 4977406-5 (Version None)
Quarter: 2006Q2

REPORT INFORMATION
  Report Type: 
  Country: None (occurrence: None)
  Receive Date: 20060412
  Receipt Date: 20060406
  Transmission Date: 20061013
  Serious: Yes (Hospitalization)
  Sender: FDA-Public Use
  Company Number: FRWYE536406APR06

PATIENT
  Age: 34 Year
  Sex: Male

DRUGS (5)
  1. EFFEXOR [Suspect]
     Dosage: 300 MG TOTAL DAILY
     Route: 048
  2. ABILIFY (ARIPIPRAZOLE, , 0) [Suspect]
     Indication: SCHIZOPHRENIA, PARANOID TYPE
     Dosage: 30 MG TOTAL DAILY
     Route: 048
  3. XANAX [Suspect]
     Route: 048
     Dates: end: 20051231
  4. IMOVANE (ZOPICLONE) [Concomitant]
  5. ESPERAL (DISULFIRAM) [Concomitant]

REACTIONS (8)
  - ANURIA [None]
  - BLOOD CALCIUM DECREASED [None]
  - CARBON DIOXIDE DECREASED [None]
  - CONVULSION [None]
  - PROTEIN TOTAL DECREASED [None]
  - RENAL FAILURE [None]
  - RHABDOMYOLYSIS [None]
  - ROAD TRAFFIC ACCIDENT [None]
